FAERS Safety Report 9454822 (Version 2)
Quarter: 2013Q4

REPORT INFORMATION
  Report Type: Spontaneous
  Country: US (occurrence: US)
  Receive Date: 20130812
  Receipt Date: 20131206
  Transmission Date: 20140711
  Serious: No
  Sender: FDA-Public Use
  Company Number: US-009507513-1308USA002393

PATIENT
  Sex: Female

DRUGS (1)
  1. NEXPLANON [Suspect]
     Dosage: UNK
     Route: 059
     Dates: start: 2013, end: 20131126

REACTIONS (4)
  - Impaired healing [Not Recovered/Not Resolved]
  - Complication of device insertion [Not Recovered/Not Resolved]
  - Implant site haemorrhage [Recovered/Resolved]
  - Implant site exfoliation [Not Recovered/Not Resolved]
